FAERS Safety Report 4424413-7 (Version None)
Quarter: 2004Q3

REPORT INFORMATION
  Report Type: 
  Country: None (occurrence: None)
  Receive Date: 20040715
  Receipt Date: 20040325
  Transmission Date: 20050211
  Serious: Yes (Other)
  Sender: FDA-Public Use
  Company Number: 2004205652US

PATIENT
  Age: 18 Year
  Sex: Female

DRUGS (1)
  1. CELEBREX [Suspect]
     Indication: JUVENILE ARTHRITIS
     Dosage: 200 MG, BID, ORAL
     Route: 048
     Dates: start: 20040308, end: 20040315

REACTIONS (3)
  - ALANINE AMINOTRANSFERASE INCREASED [None]
  - ASPARTATE AMINOTRANSFERASE INCREASED [None]
  - BLOOD CREATINE PHOSPHOKINASE INCREASED [None]
